FAERS Safety Report 6355963-4 (Version None)
Quarter: 2009Q3

REPORT INFORMATION
  Report Type: 
  Country: None (occurrence: None)
  Receive Date: 20090914
  Receipt Date: 20090914
  Transmission Date: 20100115
  Serious: Yes (Hospitalization)
  Sender: FDA-Public Use
  Company Number: None

PATIENT
  Age: 32 Year
  Sex: Female
  Weight: 69 kg

DRUGS (1)
  1. VANCOMYCIN [Suspect]
     Indication: WOUND
     Dosage: 1000 MG DAILY IV DRIP
     Route: 041
     Dates: start: 20090904, end: 20090904

REACTIONS (2)
  - INFUSION RELATED REACTION [None]
  - PRURITUS [None]
